FAERS Safety Report 4720223-1 (Version None)
Quarter: 2005Q3

REPORT INFORMATION
  Report Type: 
  Country: None (occurrence: None)
  Receive Date: 20050721
  Receipt Date: 20050711
  Transmission Date: 20060218
  Serious: Yes (Hospitalization)
  Sender: FDA-Public Use
  Company Number: 200512313FR

PATIENT
  Age: 76 Year
  Sex: Female

DRUGS (12)
  1. LASIX [Suspect]
     Route: 048
  2. RAMIPRIL [Suspect]
     Route: 048
  3. CORDARONE [Suspect]
     Route: 048
     Dates: start: 20050607, end: 20050609
  4. KARDEGIC [Suspect]
     Route: 048
  5. CARDENSIEL [Suspect]
     Route: 048
  6. PREVISCAN [Suspect]
     Route: 048
  7. ELISOR [Concomitant]
     Route: 048
  8. ALLOPURINOL [Concomitant]
     Route: 048
  9. OMEPRAZOLE [Concomitant]
     Route: 048
  10. BRICANYL [Concomitant]
  11. BRONCHODUAL [Concomitant]
  12. ATROVENT [Concomitant]

REACTIONS (4)
  - ELECTROCARDIOGRAM QT CORRECTED INTERVAL PROLONGED [None]
  - ELECTROCARDIOGRAM QT PROLONGED [None]
  - TORSADE DE POINTES [None]
  - VENTRICULAR EXTRASYSTOLES [None]
